FAERS Safety Report 4386594-3 (Version None)
Quarter: 2004Q2

REPORT INFORMATION
  Report Type: 
  Country: None (occurrence: None)
  Receive Date: 20040629
  Receipt Date: 20040524
  Transmission Date: 20050107
  Serious: Yes (Hospitalization, Other)
  Sender: FDA-Public Use
  Company Number: US-GLAXOSMITHKLINE-A0512347A

PATIENT
  Age: 47 Year
  Sex: Male

DRUGS (2)
  1. IMITREX [Suspect]
     Indication: DRUG USE FOR UNKNOWN INDICATION
     Route: 048
     Dates: start: 19990209
  2. XANAX [Concomitant]

REACTIONS (8)
  - CHEST PAIN [None]
  - CONGESTIVE CARDIOMYOPATHY [None]
  - CORONARY ARTERY DISEASE [None]
  - EJECTION FRACTION DECREASED [None]
  - EXERCISE TOLERANCE DECREASED [None]
  - FATIGUE [None]
  - NON-CARDIAC CHEST PAIN [None]
  - PALPITATIONS [None]
